FAERS Safety Report 10151136 (Version 1)
Quarter: 2014Q2

REPORT INFORMATION
  Report Type: Spontaneous
  Country: IE (occurrence: CA)
  Receive Date: 20140504
  Receipt Date: 20140504
  Transmission Date: 20141212
  Serious: Yes (Life-Threatening, Other)
  Sender: FDA-Public Use
  Company Number: 2014SP002435

PATIENT
  Sex: Female

DRUGS (6)
  1. VINORELBINE [Suspect]
     Indication: BREAST CANCER METASTATIC
     Dates: start: 20131220, end: 20131228
  2. CAPECITABINE [Suspect]
     Indication: BREAST CANCER METASTATIC
     Dates: start: 2012, end: 20131228
  3. CARBOPLATIN [Suspect]
     Indication: BREAST CANCER METASTATIC
     Dates: start: 20130830, end: 2013
  4. PACLITAXEL [Suspect]
     Indication: BREAST CANCER METASTATIC
     Dates: start: 20130830, end: 2013
  5. TRASTUZUMAB [Suspect]
     Indication: BREAST CANCER METASTATIC
     Dates: start: 201211, end: 2014
  6. LAPATINIB [Suspect]
     Indication: BREAST CANCER METASTATIC
     Dates: start: 20131220, end: 20131228

REACTIONS (3)
  - Ascites [Unknown]
  - Rash generalised [Unknown]
  - Skin exfoliation [Unknown]
